FAERS Safety Report 6251106-6 (Version None)
Quarter: 2009Q2

REPORT INFORMATION
  Report Type: 
  Country: None (occurrence: None)
  Receive Date: 20090630
  Receipt Date: 20090618
  Transmission Date: 20091009
  Serious: Yes (Hospitalization)
  Sender: FDA-Public Use
  Company Number: DE-WYE-H09912709

PATIENT
  Age: 41 Year
  Sex: Male

DRUGS (1)
  1. PANTOPRAZOLE SODIUM [Suspect]
     Indication: REFLUX OESOPHAGITIS
     Route: 048

REACTIONS (3)
  - CONDITION AGGRAVATED [None]
  - PROTEIN S DEFICIENCY [None]
  - THROMBOSIS [None]
